FAERS Safety Report 7789436-9 (Version None)
Quarter: 2011Q3

REPORT INFORMATION
  Report Type: 
  Country: None (occurrence: None)
  Receive Date: 20110930
  Receipt Date: 20110927
  Transmission Date: 20111222
  Serious: Yes (Other)
  Sender: FDA-Public Use
  Company Number: US-ABBOTT-11P-163-0858783-00

PATIENT
  Age: 41 Year
  Sex: Female

DRUGS (1)
  1. HUMIRA [Suspect]
     Indication: PSORIASIS
     Dates: end: 20110701

REACTIONS (4)
  - MENORRHAGIA [None]
  - POLYMENORRHOEA [None]
  - OROPHARYNGEAL PAIN [None]
  - LYMPHADENOPATHY [None]
